FAERS Safety Report 13499885 (Version 11)
Quarter: 2017Q4

REPORT INFORMATION
  Report Type: Report from Study
  Country: CA (occurrence: CA)
  Receive Date: 20170501
  Receipt Date: 20171229
  Transmission Date: 20180320
  Serious: Yes (Hospitalization, Other)
  Sender: FDA-Public Use
  Company Number: CA-TAKEDA-2017TUS008803

PATIENT
  Age: 47 Year
  Sex: Female

DRUGS (4)
  1. PREDNISONE. [Concomitant]
     Active Substance: PREDNISONE
     Dosage: UNK
  2. VEDOLIZUMAB [Suspect]
     Active Substance: VEDOLIZUMAB
     Dosage: 300 MG, UNK
     Route: 042
     Dates: start: 20170608
  3. VEDOLIZUMAB [Suspect]
     Active Substance: VEDOLIZUMAB
     Indication: CROHN^S DISEASE
     Dosage: 300 MG, UNK
     Route: 042
     Dates: start: 20170106
  4. BENADRYL [Concomitant]
     Active Substance: DIPHENHYDRAMINE HYDROCHLORIDE
     Indication: PREMEDICATION
     Dosage: UNK

REACTIONS (22)
  - Faeces discoloured [Unknown]
  - Gastrointestinal disorder [Unknown]
  - Fatigue [Unknown]
  - Alpha haemolytic streptococcal infection [Recovered/Resolved]
  - Diarrhoea [Unknown]
  - Poor venous access [Not Recovered/Not Resolved]
  - Pancreatic disorder [Unknown]
  - Decreased appetite [Unknown]
  - Malabsorption [Unknown]
  - Cardiac infection [Recovered/Resolved]
  - Vomiting [Unknown]
  - Anaemia [Unknown]
  - Intestinal scarring [Unknown]
  - Fluid intake reduced [Unknown]
  - Flatulence [Unknown]
  - Seizure [Unknown]
  - Abdominal pain [Not Recovered/Not Resolved]
  - Influenza [Not Recovered/Not Resolved]
  - Rash pruritic [Unknown]
  - Nausea [Unknown]
  - Pyrexia [Not Recovered/Not Resolved]
  - Sepsis [Recovered/Resolved]

NARRATIVE: CASE EVENT DATE: 20170608
